FAERS Safety Report 18320966 (Version 1)
Quarter: 2020Q3

REPORT INFORMATION
  Report Type: Spontaneous
  Country: FR (occurrence: FR)
  Receive Date: 20200928
  Receipt Date: 20200928
  Transmission Date: 20201103
  Serious: Yes (Hospitalization, Other)
  Sender: FDA-Public Use
  Company Number: FR-SA-2020SA259739

PATIENT

DRUGS (2)
  1. FLUOROURACILE [Concomitant]
     Active Substance: FLUOROURACIL
     Dosage: UNK
     Route: 065
  2. OXALIPLATIN. [Suspect]
     Active Substance: OXALIPLATIN
     Indication: COLON ADENOMA
     Dosage: 135 MG, QCY
     Route: 041
     Dates: start: 20200616, end: 20200805

REACTIONS (6)
  - Parkinson^s disease [Recovering/Resolving]
  - Acute kidney injury [Recovering/Resolving]
  - Aplasia pure red cell [Recovering/Resolving]
  - Autoimmune haemolytic anaemia [Recovering/Resolving]
  - Disseminated intravascular coagulation [Recovering/Resolving]
  - Hyperleukocytosis [Recovering/Resolving]

NARRATIVE: CASE EVENT DATE: 20200806
